FAERS Safety Report 15067059 (Version 1)
Quarter: 2018Q2

REPORT INFORMATION
  Report Type: Spontaneous
  Country: FR (occurrence: FR)
  Receive Date: 20180626
  Receipt Date: 20180626
  Transmission Date: 20180711
  Serious: Yes (Death, Life-Threatening, Other)
  Sender: FDA-Public Use
  Company Number: PHHY2018FR013446

PATIENT
  Age: 4 Day
  Sex: Female
  Weight: .88 kg

DRUGS (3)
  1. CEFOTAXIME [Suspect]
     Active Substance: CEFOTAXIME SODIUM
     Indication: BACILLUS INFECTION
     Route: 042
  2. VANCOMYCIN [Suspect]
     Active Substance: VANCOMYCIN
     Indication: BACILLUS INFECTION
     Route: 042
  3. GENTAMICIN. [Suspect]
     Active Substance: GENTAMICIN
     Indication: BACILLUS INFECTION
     Route: 042

REACTIONS (3)
  - Hypoxia [Fatal]
  - Drug ineffective [Fatal]
  - Pulmonary necrosis [Fatal]

NARRATIVE: CASE EVENT DATE: 2013
